FAERS Safety Report 15676281 (Version 7)
Quarter: 2019Q1

REPORT INFORMATION
  Report Type: Spontaneous
  Country: PT (occurrence: PT)
  Receive Date: 20181130
  Receipt Date: 20190322
  Transmission Date: 20190417
  Serious: Yes (Life-Threatening, Hospitalization, Other)
  Sender: FDA-Public Use
  Company Number: PHHY2018PT170269

PATIENT
  Age: 72 Year
  Sex: Male

DRUGS (1)
  1. IMATINIB. [Suspect]
     Active Substance: IMATINIB MESYLATE
     Indication: CHRONIC MYELOID LEUKAEMIA
     Dosage: UNK
     Route: 065

REACTIONS (8)
  - Pulmonary fibrosis [Recovered/Resolved]
  - Pulmonary toxicity [Recovered/Resolved]
  - Respiratory failure [Recovered/Resolved]
  - Crepitations [Recovering/Resolving]
  - Cough [Recovered/Resolved]
  - Breath sounds abnormal [Recovering/Resolving]
  - Toxicity to various agents [Recovering/Resolving]
  - Eczema [Recovered/Resolved]
